FAERS Safety Report 11192383 (Version 1)
Quarter: 2015Q2

REPORT INFORMATION
  Report Type: Report from Study
  Country: MX (occurrence: MX)
  Receive Date: 20150616
  Receipt Date: 20150616
  Transmission Date: 20150821
  Serious: Yes (Hospitalization, Other)
  Sender: FDA-Public Use
  Company Number: PHHY2014MX174187

PATIENT
  Sex: Female
  Weight: 60 kg

DRUGS (1)
  1. EXJADE [Suspect]
     Active Substance: DEFERASIROX
     Indication: PRODUCT USED FOR UNKNOWN INDICATION
     Dosage: UNK
     Route: 065

REACTIONS (14)
  - Platelet count decreased [Unknown]
  - Leukaemia [Unknown]
  - Limb injury [Unknown]
  - Choking [Unknown]
  - Syncope [Unknown]
  - Malaise [Unknown]
  - Memory impairment [Unknown]
  - Seizure [Unknown]
  - Bite [Unknown]
  - Movement disorder [Unknown]
  - Weight decreased [Unknown]
  - Mouth haemorrhage [Unknown]
  - Loss of consciousness [Unknown]
  - Fall [Unknown]
